FAERS Safety Report 4744868-8 (Version None)
Quarter: 2005Q3

REPORT INFORMATION
  Report Type: 
  Country: None (occurrence: None)
  Receive Date: 20050815
  Receipt Date: 20050802
  Transmission Date: 20060218
  Serious: Yes (Other)
  Sender: FDA-Public Use
  Company Number: LV-GLAXOSMITHKLINE-B0390358A

PATIENT
  Age: 33 Year
  Sex: Male

DRUGS (3)
  1. LAMICTAL [Suspect]
     Indication: EPILEPSY
     Dosage: 100MG TWICE PER DAY
     Route: 048
     Dates: start: 20050401
  2. ALPRAZOLAM [Concomitant]
     Indication: ANXIETY
     Dosage: .5MG TWICE PER DAY
  3. ZOPICLONE [Concomitant]

REACTIONS (4)
  - CONVULSION [None]
  - DRUG INEFFECTIVE [None]
  - HEADACHE [None]
  - OBSESSIVE THOUGHTS [None]
